FAERS Safety Report 4450408-3 (Version None)
Quarter: 2004Q3

REPORT INFORMATION
  Report Type: 
  Country: None (occurrence: None)
  Receive Date: 20040915
  Receipt Date: 20040830
  Transmission Date: 20050211
  Serious: Yes (Other)
  Sender: FDA-Public Use
  Company Number: 2004061003

PATIENT
  Sex: Male
  Weight: 98.8842 kg

DRUGS (1)
  1. KAOPECTATE (KAOLIN, PECTIN) [Suspect]
     Indication: IRRITABLE BOWEL SYNDROME
     Dosage: ORAL
     Route: 048
     Dates: start: 19630101

REACTIONS (1)
  - GALLBLADDER OPERATION [None]
